FAERS Safety Report 19766608 (Version 1)
Quarter: 2021Q3

REPORT INFORMATION
  Report Type: Spontaneous
  Country: FR (occurrence: FR)
  Receive Date: 20210830
  Receipt Date: 20210830
  Transmission Date: 20211014
  Serious: Yes (Death)
  Sender: FDA-Public Use
  Company Number: FR-PFIZER INC-202101078692

PATIENT
  Age: 53 Year
  Sex: Female

DRUGS (11)
  1. BROMAZEPAM [Suspect]
     Active Substance: BROMAZEPAM
     Dosage: UNK
     Dates: end: 202001
  2. MORPHINE [Suspect]
     Active Substance: MORPHINE
     Dosage: UNK
     Dates: end: 202001
  3. AMITRIPTYLINE [Suspect]
     Active Substance: AMITRIPTYLINE
     Dosage: UNK
     Dates: end: 202001
  4. CLONAZEPAM. [Suspect]
     Active Substance: CLONAZEPAM
     Dosage: UNK
     Dates: end: 202001
  5. VENLAFAXINE HCL [Suspect]
     Active Substance: VENLAFAXINE HYDROCHLORIDE
     Dosage: UNK
     Dates: end: 202001
  6. BUPRENORPHINE. [Suspect]
     Active Substance: BUPRENORPHINE
     Dosage: UNK
     Dates: end: 202001
  7. CODEINE [Suspect]
     Active Substance: CODEINE
     Dosage: UNK
     Dates: end: 202001
  8. NOSCAPINE [Suspect]
     Active Substance: NOSCAPINE
     Dosage: UNK
     Dates: end: 202001
  9. TRAMADOL. [Suspect]
     Active Substance: TRAMADOL
     Dosage: UNK
     Dates: end: 202001
  10. GABAPENTIN. [Suspect]
     Active Substance: GABAPENTIN
     Dosage: UNK
     Dates: end: 202001
  11. PAPAVERINE [Suspect]
     Active Substance: PAPAVERINE
     Dosage: UNK
     Dates: end: 202001

REACTIONS (1)
  - Drug abuse [Fatal]
